FAERS Safety Report 11541268 (Version 3)
Quarter: 2015Q4

REPORT INFORMATION
  Report Type: Spontaneous
  Country: FR (occurrence: FR)
  Receive Date: 20150923
  Receipt Date: 20151215
  Transmission Date: 20160304
  Serious: Yes (Hospitalization, Other)
  Sender: FDA-Public Use
  Company Number: FR-PFIZER INC-2015311324

PATIENT
  Age: 81 Year
  Sex: Female

DRUGS (11)
  1. LEVOTHYROX [Concomitant]
     Active Substance: LEVOTHYROXINE
     Dosage: UNK
  2. XANAX [Suspect]
     Active Substance: ALPRAZOLAM
     Indication: DEPRESSION
     Dosage: 0.5 MG, 3X/DAY
     Route: 048
     Dates: end: 2015
  3. RISPERDAL [Suspect]
     Active Substance: RISPERIDONE
     Dosage: 2 MG, 1X/DAY
     Route: 048
     Dates: end: 2015
  4. BACLOFEN. [Suspect]
     Active Substance: BACLOFEN
     Dosage: REDUCED TO HALF DOSE
     Route: 048
     Dates: start: 2015
  5. BACLOFEN. [Suspect]
     Active Substance: BACLOFEN
     Dosage: 10 MG, 3X/DAY
     Route: 048
     Dates: end: 2015
  6. NOCTAMIDE [Suspect]
     Active Substance: LORMETAZEPAM
     Dosage: 2 MG, 1X/DAY
     Route: 048
  7. XANAX [Suspect]
     Active Substance: ALPRAZOLAM
     Dosage: 0.25 MG, 2X/DAY
     Route: 048
     Dates: start: 2015
  8. MIANSERIN HYDROCHLORIDE [Suspect]
     Active Substance: MIANSERIN HYDROCHLORIDE
     Dosage: 10 MG, 1X/DAY
     Route: 048
  9. PREVISCAN /00789001/ [Concomitant]
     Active Substance: FLUINDIONE
     Dosage: UNK
  10. PRAVASTATIN SODIUM. [Concomitant]
     Active Substance: PRAVASTATIN SODIUM
     Dosage: UNK
  11. RISPERDAL [Suspect]
     Active Substance: RISPERIDONE
     Dosage: DOUBLED
     Route: 048
     Dates: start: 2015

REACTIONS (11)
  - Blood creatine phosphokinase increased [Recovered/Resolved]
  - Psychomotor skills impaired [Unknown]
  - Decreased appetite [Unknown]
  - Skin turgor decreased [Unknown]
  - Blood urea increased [Unknown]
  - Tongue disorder [Unknown]
  - Asthenia [Unknown]
  - Fall [Recovered/Resolved]
  - Rhabdomyolysis [Unknown]
  - Blood creatine phosphokinase decreased [Unknown]
  - Delirium [Unknown]

NARRATIVE: CASE EVENT DATE: 201504
